FAERS Safety Report 16176448 (Version 4)
Quarter: 2020Q4

REPORT INFORMATION
  Report Type: Report from Study
  Country: US (occurrence: US)
  Receive Date: 20190409
  Receipt Date: 20201019
  Transmission Date: 20210113
  Serious: Yes (Hospitalization, Disabling, Other)
  Sender: FDA-Public Use
  Company Number: US-SA-2019SA093695

PATIENT

DRUGS (4)
  1. ALEMTUZUMAB [Suspect]
     Active Substance: ALEMTUZUMAB
     Indication: RELAPSING-REMITTING MULTIPLE SCLEROSIS
     Dosage: 12 MG, QD
     Route: 041
     Dates: start: 20190401, end: 20190401
  2. ALEMTUZUMAB [Suspect]
     Active Substance: ALEMTUZUMAB
     Dosage: 12 MG, QD
     Route: 041
     Dates: start: 20190403, end: 20190403
  3. ALEMTUZUMAB [Suspect]
     Active Substance: ALEMTUZUMAB
     Dosage: 12 MG, QD
     Route: 041
     Dates: start: 20171127, end: 20171201
  4. ALEMTUZUMAB [Suspect]
     Active Substance: ALEMTUZUMAB
     Dosage: 12 MG, QD
     Route: 041
     Dates: start: 20190412, end: 20190412

REACTIONS (15)
  - Drug hypersensitivity [Unknown]
  - Dyspnoea [Unknown]
  - Off label use [Unknown]
  - Platelet count decreased [Recovering/Resolving]
  - Impaired work ability [Not Recovered/Not Resolved]
  - Dysphonia [Unknown]
  - Fatigue [Unknown]
  - Inappropriate schedule of product administration [Unknown]
  - Immune thrombocytopenia [Recovered/Resolved]
  - Malaise [Not Recovered/Not Resolved]
  - Muscle strain [Recovered/Resolved]
  - Muscle spasms [Recovered/Resolved]
  - Condition aggravated [Recovered/Resolved]
  - Chills [Recovering/Resolving]
  - Back pain [Not Recovered/Not Resolved]

NARRATIVE: CASE EVENT DATE: 20190401
